FAERS Safety Report 12739950 (Version 1)
Quarter: 2016Q3

REPORT INFORMATION
  Report Type: Report from Study
  Country: RO (occurrence: RO)
  Receive Date: 20160913
  Receipt Date: 20160913
  Transmission Date: 20161109
  Serious: Yes (Hospitalization)
  Sender: FDA-Public Use
  Company Number: RO-ABBVIE-16K-135-1715709-00

PATIENT
  Sex: Female

DRUGS (1)
  1. DUODOPA [Suspect]
     Active Substance: CARBIDOPA\LEVODOPA
     Indication: PARKINSON^S DISEASE
     Dosage: 24/24H WITH 2 PUMPS; CR=6.7 ML/H; CR (NIGHT)=4 ML/H; ED=3.7 ML/H, ED (NIGHT)=1.8 ML/H
     Route: 050
     Dates: start: 20121018

REACTIONS (6)
  - Stoma site haemorrhage [Recovered/Resolved]
  - General physical health deterioration [Recovering/Resolving]
  - Drug ineffective [Recovering/Resolving]
  - Fatigue [Recovering/Resolving]
  - Urinary tract infection [Recovering/Resolving]
  - Stoma site hypergranulation [Recovered/Resolved]

NARRATIVE: CASE EVENT DATE: 201608
